FAERS Safety Report 13963943 (Version 3)
Quarter: 2017Q4

REPORT INFORMATION
  Report Type: Spontaneous
  Country: US (occurrence: US)
  Receive Date: 20170913
  Receipt Date: 20171129
  Transmission Date: 20180320
  Serious: Yes (Hospitalization, Other)
  Sender: FDA-Public Use
  Company Number: US-PFIZER INC-2017388513

PATIENT
  Age: 93 Year
  Sex: Female

DRUGS (8)
  1. AMLODIPINE [Concomitant]
     Active Substance: AMLODIPINE BESYLATE
     Dosage: 5 MG, DAILY
  2. PREDNISONE. [Concomitant]
     Active Substance: PREDNISONE
     Dosage: 5 MG, DAILY
     Route: 048
  3. OMEPRAZOLE. [Concomitant]
     Active Substance: OMEPRAZOLE
     Indication: GASTROOESOPHAGEAL REFLUX DISEASE
     Dosage: 40 MG, 2X/DAY
     Route: 048
  4. LEVOTHYROXINE SODIUM. [Concomitant]
     Active Substance: LEVOTHYROXINE SODIUM
     Dosage: 75 UG, DAILY (PATIENT TAKING DIFFERENTLY: TAKE 1 TABLET BY MOUTH MON-SAT)
     Route: 048
  5. SUTENT [Suspect]
     Active Substance: SUNITINIB MALATE
     Dosage: UNK(4 WEEKS ON AND 4 WEEKS OFF)
  6. VITAMIN D3 [Concomitant]
     Active Substance: CHOLECALCIFEROL
     Dosage: 1000 IU, DAILY (UNIT/SPRAY LIQD)
  7. VITAMIN B12 [Concomitant]
     Active Substance: CYANOCOBALAMIN
     Indication: SUPPLEMENTATION THERAPY
     Dosage: UNK
     Route: 048
     Dates: start: 20150909
  8. SUTENT [Suspect]
     Active Substance: SUNITINIB MALATE
     Indication: GASTROINTESTINAL STROMAL TUMOUR
     Dosage: 25 MG, CYCLIC  (ORALLY DAILY FOR  28 DAYS, THEN 14 DAYS THEN REPEAT)
     Route: 048
     Dates: start: 20150318

REACTIONS (29)
  - Malaise [Unknown]
  - Muscular weakness [Unknown]
  - Rash macular [Recovering/Resolving]
  - Thinking abnormal [Unknown]
  - Chest pain [Unknown]
  - Asthenia [Unknown]
  - Skin discolouration [Unknown]
  - Lethargy [Unknown]
  - Pollakiuria [Unknown]
  - Breast disorder [Unknown]
  - Vomiting [Unknown]
  - Syncope [Unknown]
  - Condition aggravated [Unknown]
  - Abdominal discomfort [Unknown]
  - Hyperaesthesia [Unknown]
  - Diarrhoea [Unknown]
  - Hypoacusis [Not Recovered/Not Resolved]
  - Decreased appetite [Unknown]
  - Abdominal pain [Unknown]
  - Neutropenia [Unknown]
  - Fatigue [Not Recovered/Not Resolved]
  - Pain in extremity [Unknown]
  - Multiple sclerosis [Unknown]
  - Arthralgia [Unknown]
  - Weight decreased [Recovering/Resolving]
  - Blood pressure increased [Unknown]
  - Sleep disorder [Unknown]
  - Peripheral swelling [Unknown]
  - Oedema [Unknown]

NARRATIVE: CASE EVENT DATE: 20150416
